FAERS Safety Report 8616363-7 (Version None)
Quarter: 2012Q3

REPORT INFORMATION
  Report Type: 
  Country: None (occurrence: None)
  Receive Date: 20120823
  Receipt Date: 20120801
  Transmission Date: 20120928
  Serious: No
  Sender: FDA-Public Use
  Company Number: US-MYLANLABS-2012S1015820

PATIENT
  Age: 49 Year
  Sex: Female
  Weight: 75.75 kg

DRUGS (5)
  1. AMBIEN [Concomitant]
     Indication: INSOMNIA
     Route: 048
  2. IBUPROFEN [Concomitant]
     Indication: ARTHRITIS
     Route: 048
  3. LIPITOR [Concomitant]
     Indication: BLOOD CHOLESTEROL INCREASED
     Route: 048
  4. BUDESONIDE [Suspect]
     Indication: COLITIS
     Route: 048
     Dates: start: 20110101, end: 20120723
  5. LISINOPRIL [Concomitant]
     Indication: BLOOD PRESSURE INCREASED
     Route: 048

REACTIONS (8)
  - CONTUSION [None]
  - FATIGUE [None]
  - DRUG EFFECT DECREASED [None]
  - DIARRHOEA [None]
  - BLOOD GLUCOSE DECREASED [None]
  - ASTHENIA [None]
  - PETECHIAE [None]
  - CARDIAC FLUTTER [None]
